FAERS Safety Report 6173844-6 (Version None)
Quarter: 2009Q2

REPORT INFORMATION
  Report Type: 
  Country: None (occurrence: None)
  Receive Date: 20090429
  Receipt Date: 20090429
  Transmission Date: 20091009
  Serious: No
  Sender: FDA-Public Use
  Company Number: None

PATIENT
  Age: 77 Year
  Sex: Male
  Weight: 65.9 kg

DRUGS (2)
  1. BACTRIM DS [Suspect]
     Indication: PROPHYLAXIS
     Dosage: ONE TAB DS X1 PO
     Route: 048
     Dates: start: 20090413
  2. ANCEF [Suspect]
     Indication: PROPHYLAXIS
     Dosage: ONE GRAM IVP X1 IV
     Route: 042
     Dates: start: 20090413

REACTIONS (3)
  - FLUSHING [None]
  - HEART RATE DECREASED [None]
  - PALPITATIONS [None]
